FAERS Safety Report 7199660-4 (Version None)
Quarter: 2010Q4

REPORT INFORMATION
  Report Type: 
  Country: None (occurrence: None)
  Receive Date: 20101228
  Receipt Date: 20101218
  Transmission Date: 20110411
  Serious: Yes (Hospitalization, Other)
  Sender: FDA-Public Use
  Company Number: TR-JNJFOC-20101207889

PATIENT
  Age: 16 Year
  Sex: Male

DRUGS (8)
  1. RISPERIDONE [Suspect]
     Indication: MENTAL RETARDATION
     Route: 065
  2. RISPERIDONE [Suspect]
     Indication: PSYCHOTIC DISORDER
     Route: 065
  3. RISPERIDONE [Suspect]
     Route: 065
  4. RISPERIDONE [Suspect]
     Route: 065
  5. BIPERIDEN HYDROCHLORIDE TAB [Suspect]
     Indication: MENTAL RETARDATION
     Route: 065
  6. BIPERIDEN HYDROCHLORIDE TAB [Suspect]
     Indication: PSYCHOTIC DISORDER
     Route: 065
  7. DIAZEPAM [Suspect]
     Indication: PSYCHOTIC DISORDER
     Route: 065
  8. DIAZEPAM [Suspect]
     Indication: MENTAL RETARDATION
     Route: 065

REACTIONS (7)
  - EPILEPSY [None]
  - LOSS OF CONSCIOUSNESS [None]
  - NAUSEA [None]
  - NEUROLEPTIC MALIGNANT SYNDROME [None]
  - SEVERE MENTAL RETARDATION [None]
  - UPPER RESPIRATORY TRACT INFECTION [None]
  - VOMITING [None]
